FAERS Safety Report 11598857 (Version 1)
Quarter: 2015Q4

REPORT INFORMATION
  Report Type: Spontaneous
  Country: US (occurrence: US)
  Receive Date: 20151006
  Receipt Date: 20151006
  Transmission Date: 20160304
  Serious: No
  Sender: FDA-Public Use
  Company Number: US-BAYER-2015-434715

PATIENT
  Age: 76 Year
  Sex: Male
  Weight: 68.27 kg

DRUGS (2)
  1. CLARITIN [Suspect]
     Active Substance: LORATADINE
     Indication: SINUSITIS
  2. EYE DROPS [Concomitant]
     Active Substance: TETRAHYDROZOLINE HYDROCHLORIDE

REACTIONS (7)
  - Lacrimation increased [Unknown]
  - Eyelid oedema [None]
  - Nasal congestion [None]
  - Ocular discomfort [None]
  - Product use issue [Unknown]
  - Eyelid ptosis [Not Recovered/Not Resolved]
  - Secretion discharge [Unknown]

NARRATIVE: CASE EVENT DATE: 20150929
